FAERS Safety Report 18684087 (Version 1)
Quarter: 2020Q4

REPORT INFORMATION
  Report Type: Spontaneous
  Country: JP (occurrence: JP)
  Receive Date: 20201230
  Receipt Date: 20201230
  Transmission Date: 20210114
  Serious: Yes (Death, Other)
  Sender: FDA-Public Use
  Company Number: JP-AMGEN-JPNSP2020211108

PATIENT
  Age: 15 Year
  Sex: Male

DRUGS (1)
  1. BLINCYTO [Suspect]
     Active Substance: BLINATUMOMAB
     Indication: B PRECURSOR TYPE ACUTE LEUKAEMIA
     Dosage: UNK
     Route: 041
     Dates: start: 20201222, end: 20201223

REACTIONS (3)
  - Acute lymphocytic leukaemia recurrent [Fatal]
  - Oliguria [Fatal]
  - Off label use [Unknown]

NARRATIVE: CASE EVENT DATE: 202012
